FAERS Safety Report 25545702 (Version 1)
Quarter: 2025Q3

REPORT INFORMATION
  Report Type: Spontaneous
  Country: US (occurrence: US)
  Receive Date: 20250712
  Receipt Date: 20250712
  Transmission Date: 20251020
  Serious: No
  Sender: SANOFI AVENTIS
  Company Number: US-SA-2025SA195683

PATIENT
  Sex: Female
  Weight: 60 kg

DRUGS (21)
  1. DUPIXENT [Suspect]
     Active Substance: DUPILUMAB
     Indication: Dermatitis atopic
     Dosage: 300 MG, QOW
     Route: 058
  2. TRIAMCINOLONE ACETONIDE [Concomitant]
     Active Substance: TRIAMCINOLONE ACETONIDE
  3. MUPIROCIN [Concomitant]
     Active Substance: MUPIROCIN
  4. ALBUTEROL SULFATE [Concomitant]
     Active Substance: ALBUTEROL SULFATE
  5. WELLBETX BERBERINE [Concomitant]
  6. QUERCISORB QR [Concomitant]
  7. WHITE WILLOW BARK [Concomitant]
  8. PRASTERONE [Concomitant]
     Active Substance: PRASTERONE
  9. MAG GLYCINATE [Concomitant]
  10. FISH OIL [COD-LIVER OIL] [Concomitant]
  11. VITAMIN D3 K2 [Concomitant]
  12. CHOLESTYRAMINE [Concomitant]
     Active Substance: CHOLESTYRAMINE
  13. PREGNENOLONE [Concomitant]
     Active Substance: PREGNENOLONE
  14. TRELEGY ELLIPTA [Concomitant]
     Active Substance: FLUTICASONE FUROATE\UMECLIDINIUM BROMIDE\VILANTEROL TRIFENATATE
  15. VITAMIN C [Concomitant]
     Active Substance: ASCORBIC ACID
  16. ZINC [Concomitant]
     Active Substance: ZINC
  17. XLEAR [Concomitant]
  18. MEGASPOREBIOTIC [Concomitant]
  19. LUTEOLIN [Concomitant]
     Active Substance: LUTEOLIN
  20. THERACURMIN HP [Concomitant]
  21. DIETARY SUPPLEMENT\RESVERATROL [Concomitant]
     Active Substance: DIETARY SUPPLEMENT\RESVERATROL

REACTIONS (1)
  - Drug ineffective [Unknown]
